FAERS Safety Report 19675396 (Version 1)
Quarter: 2021Q3

REPORT INFORMATION
  Report Type: Spontaneous
  Country: SE (occurrence: SE)
  Receive Date: 20210809
  Receipt Date: 20210809
  Transmission Date: 20211014
  Serious: Yes (Life-Threatening, Hospitalization, Other)
  Sender: FDA-Public Use
  Company Number: SE-MYLANLABS-2021M1049571

PATIENT
  Sex: Female
  Weight: 85 kg

DRUGS (3)
  1. IMIGRAN                            /01044801/ [Interacting]
     Active Substance: SUMATRIPTAN
     Indication: MIGRAINE
     Dosage: UNK
  2. VENLAFAXINE [Interacting]
     Active Substance: VENLAFAXINE HYDROCHLORIDE
     Indication: STRESS
  3. VENLAFAXINE [Suspect]
     Active Substance: VENLAFAXINE HYDROCHLORIDE
     Indication: DEPRESSION
     Dosage: UNK
     Dates: start: 202009

REACTIONS (7)
  - Vomiting [Recovered/Resolved]
  - Restlessness [Recovered/Resolved]
  - Palpitations [Recovered/Resolved]
  - Dyspnoea [Recovered/Resolved]
  - Hyperhidrosis [Recovered/Resolved]
  - Feeling abnormal [Recovered/Resolved]
  - Drug interaction [Recovered/Resolved]
